FAERS Safety Report 25150402 (Version 1)
Quarter: 2025Q2

REPORT INFORMATION
  Report Type: Spontaneous
  Country: FR (occurrence: FR)
  Receive Date: 20250402
  Receipt Date: 20250402
  Transmission Date: 20250717
  Serious: Yes (Other)
  Sender: MERCK SHARP AND DOHME
  Company Number: None

PATIENT
  Age: 69 Year
  Sex: Female
  Weight: 51.5 kg

DRUGS (7)
  1. KEYTRUDA [Suspect]
     Active Substance: PEMBROLIZUMAB
     Indication: Triple negative breast cancer
     Route: 042
     Dates: start: 20250123, end: 20250227
  2. OLANZAPINE [Concomitant]
     Active Substance: OLANZAPINE
  3. METHYLPREDNISOLONE (ACETATE) [Concomitant]
  4. PACLITAXEL [Concomitant]
     Active Substance: PACLITAXEL
  5. POLARAMINE [Concomitant]
     Active Substance: DEXCHLORPHENIRAMINE MALEATE
  6. CARBOPLATIN [Concomitant]
     Active Substance: CARBOPLATIN
  7. ONDANSETRON [Concomitant]
     Active Substance: ONDANSETRON

REACTIONS (2)
  - Jaundice cholestatic [Recovering/Resolving]
  - Rash macular [Recovering/Resolving]

NARRATIVE: CASE EVENT DATE: 20250301
